FAERS Safety Report 7770458-9 (Version None)
Quarter: 2011Q3

REPORT INFORMATION
  Report Type: 
  Country: None (occurrence: None)
  Receive Date: 20110922
  Receipt Date: 20100412
  Transmission Date: 20111222
  Serious: No
  Sender: FDA-Public Use
  Company Number: US-ASTRAZENECA-2009UW16030

PATIENT
  Sex: Male

DRUGS (9)
  1. OLANZAPINE [Concomitant]
     Route: 048
     Dates: start: 20001205
  2. LORAZEPAM [Concomitant]
     Indication: AGITATION
     Dosage: PRN
     Route: 048
     Dates: start: 20011115
  3. VALPROIC ACID [Concomitant]
     Dosage: 750-1000 MG
     Route: 048
     Dates: start: 20001205
  4. RISPERIDONE [Concomitant]
     Route: 048
     Dates: start: 20011115
  5. TAMOXIFEN CITRATE [Concomitant]
     Dates: start: 20001205
  6. KLONOPIN [Concomitant]
     Indication: AGITATION
     Route: 048
     Dates: start: 20001221
  7. SEROQUEL [Suspect]
     Dosage: 50-600MG
     Route: 048
     Dates: start: 20001208, end: 20010102
  8. ZOCOR [Concomitant]
     Route: 048
     Dates: start: 20001205
  9. TRAZODONE HYDROCHLORIDE [Concomitant]
     Dates: start: 20011115

REACTIONS (4)
  - TYPE 2 DIABETES MELLITUS [None]
  - INSOMNIA [None]
  - MANIA [None]
  - SPEECH DISORDER [None]
